FAERS Safety Report 9410578 (Version 1)
Quarter: 2013Q3

REPORT INFORMATION
  Report Type: Report from Study
  Country: TW (occurrence: TW)
  Receive Date: 20130719
  Receipt Date: 20130719
  Transmission Date: 20140515
  Serious: Yes (Hospitalization)
  Sender: FDA-Public Use
  Company Number: TW-DSPJ_CW-201309211

PATIENT
  Age: 32 Year
  Sex: Male
  Weight: 93 kg

DRUGS (7)
  1. SM-13496 [Suspect]
     Indication: SCHIZOPHRENIA
     Route: 048
     Dates: start: 20130627, end: 20130703
  2. SM-13496 [Suspect]
     Indication: SCHIZOPHRENIA
     Route: 048
     Dates: start: 20130704, end: 20130710
  3. BROTIZOLAM [Concomitant]
     Indication: INSOMNIA
     Route: 048
     Dates: start: 20130123
  4. LORAZEPAM [Concomitant]
     Indication: ANXIETY
     Route: 048
     Dates: start: 20130620, end: 20130710
  5. LORAZEPAM [Concomitant]
     Indication: ANXIETY
     Route: 048
     Dates: start: 20130711
  6. CALCIPOTRIOL HYDRATE + BETAMETHASONE DIPROPIONATE [Concomitant]
     Indication: PSORIASIS
     Route: 061
     Dates: start: 20130516
  7. SEROQUEL XR [Concomitant]
     Indication: SCHIZOPHRENIA
     Route: 048
     Dates: start: 20130711

REACTIONS (1)
  - Schizophrenia [Not Recovered/Not Resolved]
